FAERS Safety Report 17974780 (Version 3)
Quarter: 2020Q4

REPORT INFORMATION
  Report Type: Report from Study
  Country: MX (occurrence: MX)
  Receive Date: 20200702
  Receipt Date: 20201003
  Transmission Date: 20210113
  Serious: Yes (Death, Other)
  Sender: FDA-Public Use
  Company Number: NVSC2020MX186434

PATIENT
  Age: 70 Year
  Sex: Female
  Weight: 90 kg

DRUGS (6)
  1. DIGOXIN. [Concomitant]
     Active Substance: DIGOXIN
     Indication: ARRHYTHMIA
     Dosage: UNK
     Route: 048
     Dates: end: 20200503
  2. ENTRESTO [Suspect]
     Active Substance: SACUBITRIL\VALSARTAN
     Indication: HYPERTENSION
     Dosage: 1 DF (100 MG), QD (STARTED 3 OR 4 MONTHS AGO)
     Route: 048
  3. TAFIL [Concomitant]
     Active Substance: ALPRAZOLAM
     Indication: SLEEP DISORDER
     Dosage: STARTED 8 YEARS AGO
     Route: 048
     Dates: end: 20200503
  4. LEVOTHYROXIN [Concomitant]
     Active Substance: LEVOTHYROXINE
     Indication: THYROID DISORDER
     Dosage: 1.5 MG, QD
     Route: 065
     Dates: start: 1997, end: 20200503
  5. ENTRESTO [Suspect]
     Active Substance: SACUBITRIL\VALSARTAN
     Indication: RIGHT VENTRICULAR DYSFUNCTION
     Dosage: 1 DF, QD (100 MG) STARTED 2AND HALF MONTHS AGO
     Route: 048
     Dates: end: 20200503
  6. SINTROM [Concomitant]
     Active Substance: ACENOCOUMAROL
     Indication: CARDIAC DISORDER
     Dosage: STARTED 5 YEARS AGO
     Route: 065
     Dates: end: 20200503

REACTIONS (5)
  - COVID-19 [Fatal]
  - Product use in unapproved indication [Unknown]
  - Off label use [Unknown]
  - Pancreatitis [Fatal]
  - Thrombosis [Fatal]

NARRATIVE: CASE EVENT DATE: 20200503
